FAERS Safety Report 9689213 (Version 1)
Quarter: 2013Q4

REPORT INFORMATION
  Report Type: Report from Study
  Country: US (occurrence: US)
  Receive Date: 20131114
  Receipt Date: 20131114
  Transmission Date: 20140711
  Serious: Yes (Other)
  Sender: FDA-Public Use
  Company Number: US-ROCHE-1300675

PATIENT
  Sex: Male
  Weight: 30.5 kg

DRUGS (2)
  1. NUTROPIN AQ [Suspect]
     Indication: BODY HEIGHT BELOW NORMAL
     Route: 058
     Dates: start: 200807
  2. CONCERTA [Concomitant]
     Route: 048

REACTIONS (4)
  - Bone development abnormal [Unknown]
  - Dysphonia [Unknown]
  - Cough [Unknown]
  - Acne [Not Recovered/Not Resolved]
